FAERS Safety Report 5259594-9 (Version None)
Quarter: 2007Q1

REPORT INFORMATION
  Report Type: 
  Country: None (occurrence: None)
  Receive Date: 20070307
  Receipt Date: 20070307
  Transmission Date: 20070707
  Serious: Yes (Hospitalization, Other)
  Sender: FDA-Public Use
  Company Number: None

PATIENT
  Age: 54 Year
  Sex: Male
  Weight: 105.6881 kg

DRUGS (6)
  1. DICLOFENAC SODIUM [Suspect]
     Indication: MUSCULOSKELETAL STIFFNESS
     Dosage: 1 TABLET TWICE DAILY PO
     Route: 048
  2. DICLOFENAC SODIUM [Suspect]
     Indication: PAIN
     Dosage: 1 TABLET TWICE DAILY PO
     Route: 048
  3. DICLOFENAC SODIUM [Suspect]
     Indication: POLIOMYELITIS
     Dosage: 1 TABLET TWICE DAILY PO
     Route: 048
  4. DARVOCET-N 100 [Concomitant]
  5. QUINAPRIL [Concomitant]
  6. BISOPROLOL FUMARATE AND HYDROCHLOROTHIAZIDE [Concomitant]

REACTIONS (4)
  - ABNORMAL BEHAVIOUR [None]
  - CONFUSIONAL STATE [None]
  - GLOBAL AMNESIA [None]
  - MENTAL STATUS CHANGES [None]
